FAERS Safety Report 18912980 (Version 1)
Quarter: 2021Q1

REPORT INFORMATION
  Report Type: Report from Study
  Country: None (occurrence: US)
  Receive Date: 20210219
  Receipt Date: 20210219
  Transmission Date: 20210420
  Serious: Yes (Other)
  Sender: FDA-Public Use
  Company Number: US-ABBVIE-21K-163-3775435-00

PATIENT
  Age: 45 Year
  Sex: Female

DRUGS (1)
  1. HUMIRA [Suspect]
     Active Substance: ADALIMUMAB
     Indication: PRODUCT USED FOR UNKNOWN INDICATION
     Route: 058

REACTIONS (5)
  - Postoperative thrombosis [Recovering/Resolving]
  - Pain [Not Recovered/Not Resolved]
  - Abscess [Unknown]
  - Skin ulcer [Recovering/Resolving]
  - Scar [Unknown]

NARRATIVE: CASE EVENT DATE: 202010
